FAERS Safety Report 20897298 (Version 1)
Quarter: 2022Q2

REPORT INFORMATION
  Report Type: Spontaneous
  Country: DE (occurrence: DE)
  Receive Date: 20220531
  Receipt Date: 20220531
  Transmission Date: 20220721
  Serious: Yes (Other)
  Sender: FDA-Public Use
  Company Number: DE-PFIZER INC-202200733567

PATIENT
  Age: 7 Decade
  Sex: Female

DRUGS (2)
  1. INLYTA [Suspect]
     Active Substance: AXITINIB
     Indication: Clear cell renal cell carcinoma
     Dosage: 5 MG, TWICE DAILY
     Dates: start: 20191015
  2. PEMBROLIZUMAB [Suspect]
     Active Substance: PEMBROLIZUMAB
     Indication: Clear cell renal cell carcinoma
     Dosage: 400 MG, EVERY SIX WEEKS
     Dates: start: 20191015

REACTIONS (2)
  - Autoimmune colitis [Unknown]
  - Off label use [Unknown]

NARRATIVE: CASE EVENT DATE: 20191015
